FAERS Safety Report 4505625-0 (Version None)
Quarter: 2004Q4

REPORT INFORMATION
  Report Type: 
  Country: None (occurrence: None)
  Receive Date: 20041025
  Receipt Date: 20031112
  Transmission Date: 20050328
  Serious: Yes (Other)
  Sender: FDA-Public Use
  Company Number: US-JNJFOC-20031004737

PATIENT
  Age: 62 Year
  Sex: Female
  Weight: 67.1324 kg

DRUGS (3)
  1. REMICADE [Suspect]
     Indication: RHEUMATOID ARTHRITIS
     Dosage: 7.4 MG/KG, INTRAVENOUS
     Route: 042
     Dates: start: 20020320
  2. AZULFADINE (SULFASALAZINE) [Concomitant]
  3. METHOTREXATE [Concomitant]

REACTIONS (1)
  - DIFFUSE LARGE B-CELL LYMPHOMA [None]
